FAERS Safety Report 16320935 (Version 1)
Quarter: 2019Q2

REPORT INFORMATION
  Report Type: Spontaneous
  Country: FR (occurrence: FR)
  Receive Date: 20190516
  Receipt Date: 20190516
  Transmission Date: 20190711
  Serious: Yes (Hospitalization, Other)
  Sender: FDA-Public Use
  Company Number: FR-BAYER-2017-021541

PATIENT
  Age: 34 Year
  Sex: Female
  Weight: 83 kg

DRUGS (3)
  1. MIRENA [Suspect]
     Active Substance: LEVONORGESTREL
     Indication: MENOMETRORRHAGIA
     Dosage: 20 MCG/24HR, CONT
     Route: 015
     Dates: start: 2018, end: 2018
  2. MIRENA [Suspect]
     Active Substance: LEVONORGESTREL
  3. ESSURE [Suspect]
     Active Substance: DEVICE
     Dosage: UNK
     Dates: start: 2012, end: 20180914

REACTIONS (43)
  - Visual impairment [Unknown]
  - Dry eye [Unknown]
  - Eczema [Unknown]
  - Urinary tract infection [Unknown]
  - Uterine mass [Unknown]
  - General physical health deterioration [Unknown]
  - Ear discomfort [Unknown]
  - Furuncle [Unknown]
  - Fatigue [Unknown]
  - Restless legs syndrome [Unknown]
  - Adenomyosis [Unknown]
  - Endometriosis [Unknown]
  - Sleep apnoea syndrome [Unknown]
  - Menometrorrhagia [Unknown]
  - Pyelonephritis [Unknown]
  - Menorrhagia [Unknown]
  - Ovulation pain [Unknown]
  - Urinary tract inflammation [Unknown]
  - Migraine with aura [Unknown]
  - Disturbance in attention [Unknown]
  - Pelvic pain [Unknown]
  - Menometrorrhagia [Unknown]
  - Sjogren^s syndrome [Unknown]
  - Abscess [Unknown]
  - Corneal defect [Unknown]
  - Sciatica [Unknown]
  - Dry eye [Unknown]
  - Dizziness [Unknown]
  - Dyshidrotic eczema [Unknown]
  - Lymphocytic infiltration [Unknown]
  - Fibromyalgia [Unknown]
  - Aptyalism [Unknown]
  - Insomnia [Unknown]
  - Tinnitus [Unknown]
  - Pelvic discomfort [Unknown]
  - Device dislocation [Unknown]
  - Post procedural haemorrhage [Unknown]
  - Pain [Unknown]
  - Tinnitus [Unknown]
  - Back pain [Unknown]
  - Somnolence [Unknown]
  - Amnesia [Unknown]
  - Abdominal pain [Unknown]

NARRATIVE: CASE EVENT DATE: 2012
